FAERS Safety Report 4422862-4 (Version None)
Quarter: 2004Q3

REPORT INFORMATION
  Report Type: 
  Country: None (occurrence: None)
  Receive Date: 20040804
  Receipt Date: 20040722
  Transmission Date: 20050211
  Serious: Yes (Death)
  Sender: FDA-Public Use
  Company Number: T01-USA-01478-01

PATIENT
  Sex: Female
  Weight: 0.591 kg

DRUGS (5)
  1. INFASURF PRESERVATIVE FREE [Suspect]
     Indication: NEONATAL RESPIRATORY DISTRESS SYNDROME
  2. SURVANTA [Suspect]
     Indication: NEONATAL RESPIRATORY DISTRESS SYNDROME
     Dosage: 1 UNITS ONCE TRACH
     Dates: start: 20010725, end: 20010725
  3. AMPICILLIN [Concomitant]
  4. CEFOTAXIME SODIUM [Concomitant]
  5. INDOMETHACIN 25MG CAP [Concomitant]

REACTIONS (5)
  - NEONATAL DISORDER [None]
  - NEONATAL RESPIRATORY FAILURE [None]
  - PNEUMOTHORAX [None]
  - PULMONARY INTERSTITIAL EMPHYSEMA SYNDROME [None]
  - SEPSIS NEONATAL [None]
